FAERS Safety Report 5293495-5 (Version None)
Quarter: 2007Q2

REPORT INFORMATION
  Report Type: 
  Country: None (occurrence: None)
  Receive Date: 20070411
  Receipt Date: 20070405
  Transmission Date: 20071010
  Serious: No
  Sender: FDA-Public Use
  Company Number: US-GLAXOSMITHKLINE-A0644693A

PATIENT
  Sex: Male

DRUGS (1)
  1. COREG [Suspect]
     Indication: OBSTRUCTION
     Dosage: 6.25MG TWICE PER DAY
     Route: 065

REACTIONS (1)
  - DYSPNOEA [None]
